FAERS Safety Report 9335072 (Version 1)
Quarter: 2013Q2

REPORT INFORMATION
  Report Type: Spontaneous
  Country: FR (occurrence: FR)
  Receive Date: 20130606
  Receipt Date: 20130606
  Transmission Date: 20140414
  Serious: Yes (Other)
  Sender: FDA-Public Use
  Company Number: FR-GILEAD-2013-0076446

PATIENT
  Age: 55 Year
  Sex: Male

DRUGS (7)
  1. TRUVADA [Suspect]
     Indication: HIV INFECTION
     Dosage: UNK
     Route: 048
     Dates: start: 20111123
  2. INEGY [Interacting]
     Indication: MYOCARDIAL INFARCTION
     Dosage: 50 DF, UNK
     Route: 048
     Dates: start: 20130215
  3. PREZISTA [Concomitant]
     Indication: HIV INFECTION
     Dosage: 800 DF, UNK
     Route: 048
     Dates: start: 20111123, end: 20130516
  4. NORVIR [Concomitant]
     Indication: HIV INFECTION
     Dosage: 100 DF, UNK
     Route: 048
     Dates: start: 20111123, end: 20130516
  5. DUOPLAVIN [Concomitant]
     Indication: MYOCARDIAL INFARCTION
     Dosage: UNK
     Route: 048
     Dates: start: 20130215
  6. COVERSYL                           /00790702/ [Concomitant]
     Indication: MYOCARDIAL INFARCTION
     Dosage: 10 DF, UNK
     Route: 048
     Dates: start: 20130215
  7. RANIPLEX                           /00550801/ [Concomitant]
     Indication: MYOCARDIAL INFARCTION
     Dosage: 150 DF, UNK
     Route: 048
     Dates: start: 20130215

REACTIONS (2)
  - Acute coronary syndrome [Unknown]
  - Drug interaction [Recovering/Resolving]
